FAERS Safety Report 8257128-8 (Version None)
Quarter: 2012Q1

REPORT INFORMATION
  Report Type: 
  Country: None (occurrence: None)
  Receive Date: 20120330
  Receipt Date: 20120330
  Transmission Date: 20120608
  Serious: Yes (Disabling, Other)
  Sender: FDA-Public Use
  Company Number: None

PATIENT
  Sex: Female
  Weight: 62.5964 kg

DRUGS (1)
  1. LITHIUM CARBONATE [Suspect]
     Dosage: 450 MG (2X A DAY) ROXANNE LABS

REACTIONS (2)
  - SUICIDE ATTEMPT [None]
  - ALOPECIA [None]
